FAERS Safety Report 6646094-4 (Version None)
Quarter: 2010Q1

REPORT INFORMATION
  Report Type: 
  Country: None (occurrence: None)
  Receive Date: 20100318
  Receipt Date: 20100303
  Transmission Date: 20100710
  Serious: Yes (Other)
  Sender: FDA-Public Use
  Company Number: ISPH-2010-0078

PATIENT
  Age: 75 Year
  Sex: Male
  Weight: 74.8 kg

DRUGS (17)
  1. AZASITE [Suspect]
     Indication: BLEPHARITIS
     Dosage: 1 GTT, BID, OPHTHALMIC; 1 GTT, QD, OPHTHALMIC
     Route: 047
     Dates: start: 20100120, end: 20100201
  2. AZASITE [Suspect]
     Indication: EYE INFECTION STAPHYLOCOCCAL
     Dosage: 1 GTT, BID, OPHTHALMIC; 1 GTT, QD, OPHTHALMIC
     Route: 047
     Dates: start: 20100120, end: 20100201
  3. AZASITE [Suspect]
     Indication: EYELID OEDEMA
     Dosage: 1 GTT, BID, OPHTHALMIC; 1 GTT, QD, OPHTHALMIC
     Route: 047
     Dates: start: 20100120, end: 20100201
  4. AZASITE [Suspect]
     Indication: OCULAR HYPERAEMIA
     Dosage: 1 GTT, BID, OPHTHALMIC; 1 GTT, QD, OPHTHALMIC
     Route: 047
     Dates: start: 20100120, end: 20100201
  5. AZASITE [Suspect]
     Indication: ULCERATIVE KERATITIS
     Dosage: 1 GTT, BID, OPHTHALMIC; 1 GTT, QD, OPHTHALMIC
     Route: 047
     Dates: start: 20100120, end: 20100201
  6. AZASITE [Suspect]
     Indication: BLEPHARITIS
     Dosage: 1 GTT, BID, OPHTHALMIC; 1 GTT, QD, OPHTHALMIC
     Route: 047
     Dates: start: 20100202, end: 20100223
  7. AZASITE [Suspect]
     Indication: EYE INFECTION STAPHYLOCOCCAL
     Dosage: 1 GTT, BID, OPHTHALMIC; 1 GTT, QD, OPHTHALMIC
     Route: 047
     Dates: start: 20100202, end: 20100223
  8. AZASITE [Suspect]
     Indication: EYELID OEDEMA
     Dosage: 1 GTT, BID, OPHTHALMIC; 1 GTT, QD, OPHTHALMIC
     Route: 047
     Dates: start: 20100202, end: 20100223
  9. AZASITE [Suspect]
     Indication: OCULAR HYPERAEMIA
     Dosage: 1 GTT, BID, OPHTHALMIC; 1 GTT, QD, OPHTHALMIC
     Route: 047
     Dates: start: 20100202, end: 20100223
  10. AZASITE [Suspect]
     Indication: ULCERATIVE KERATITIS
     Dosage: 1 GTT, BID, OPHTHALMIC; 1 GTT, QD, OPHTHALMIC
     Route: 047
     Dates: start: 20100202, end: 20100223
  11. ASPIRIN [Concomitant]
  12. ARTIFICIAL TEARS [Concomitant]
  13. MAGNESIUM (MAGNESIUM) [Concomitant]
  14. FOLIC ACID [Concomitant]
  15. CO Q-10 (UBIDECARENONE) [Concomitant]
  16. VITAMIN D [Concomitant]
  17. TOBRADEX [Concomitant]

REACTIONS (8)
  - ACCIDENTAL OVERDOSE [None]
  - BLEPHARITIS [None]
  - BURNING SENSATION [None]
  - EYE IRRITATION [None]
  - EYE PRURITUS [None]
  - EYELID OEDEMA [None]
  - HYPERSENSITIVITY [None]
  - ULCERATIVE KERATITIS [None]
